FAERS Safety Report 11703800 (Version 2)
Quarter: 2016Q1

REPORT INFORMATION
  Report Type: Spontaneous
  Country: PE (occurrence: PE)
  Receive Date: 20151106
  Receipt Date: 20160218
  Transmission Date: 20160525
  Serious: Yes (Life-Threatening, Other)
  Sender: FDA-Public Use
  Company Number: PE-PFIZER INC-2015369550

PATIENT
  Age: 79 Year
  Sex: Female

DRUGS (1)
  1. AMLODIPINE BESYLATE AND ATORVASTATIN CALCIUM [Suspect]
     Active Substance: AMLODIPINE BESYLATE\ATORVASTATIN CALCIUM
     Dosage: 1 DF, DAILY

REACTIONS (2)
  - Blood pressure inadequately controlled [Unknown]
  - Cerebrovascular accident [Unknown]
